FAERS Safety Report 6928686-8 (Version None)
Quarter: 2010Q3

REPORT INFORMATION
  Report Type: 
  Country: None (occurrence: None)
  Receive Date: 20100817
  Receipt Date: 20100810
  Transmission Date: 20110219
  Serious: Yes (Disabling)
  Sender: FDA-Public Use
  Company Number: A0874894A

PATIENT
  Sex: Female

DRUGS (2)
  1. PAXIL [Suspect]
     Indication: STRESS
     Dosage: 10MG AT NIGHT
     Route: 048
     Dates: start: 19950101
  2. ADVIL LIQUI-GELS [Concomitant]

REACTIONS (3)
  - DISTURBANCE IN ATTENTION [None]
  - FEELING ABNORMAL [None]
  - PARAESTHESIA [None]
